FAERS Safety Report 20995435 (Version 6)
Quarter: 2024Q3

REPORT INFORMATION
  Report Type: Spontaneous
  Country: US (occurrence: US)
  Receive Date: 20220622
  Receipt Date: 20240725
  Transmission Date: 20241016
  Serious: No
  Sender: BIOGEN
  Company Number: US-BIOGEN-2022BI01133429

PATIENT
  Sex: Male

DRUGS (3)
  1. TYSABRI [Suspect]
     Active Substance: NATALIZUMAB
     Indication: Multiple sclerosis
     Route: 050
     Dates: start: 20080205, end: 20120824
  2. TYSABRI [Suspect]
     Active Substance: NATALIZUMAB
     Route: 050
     Dates: start: 20140123, end: 20150928
  3. TYSABRI [Suspect]
     Active Substance: NATALIZUMAB
     Route: 050
     Dates: start: 20220621, end: 20230103

REACTIONS (9)
  - Product dose omission issue [Unknown]
  - Gait inability [Unknown]
  - Hemiparesis [Unknown]
  - Amnesia [Unknown]
  - Temperature intolerance [Unknown]
  - General physical health deterioration [Unknown]
  - Nephrolithiasis [Unknown]
  - Muscle spasms [Unknown]
  - Urinary tract infection [Unknown]
